FAERS Safety Report 9010352 (Version 3)
Quarter: 2013Q2

REPORT INFORMATION
  Report Type: Spontaneous
  Country: US (occurrence: US)
  Receive Date: 20130109
  Receipt Date: 20130429
  Transmission Date: 20140414
  Serious: Yes (Hospitalization, Other)
  Sender: FDA-Public Use
  Company Number: US-009507513-1201USA00885

PATIENT
  Sex: Female
  Weight: 90.25 kg

DRUGS (5)
  1. FOSAMAX [Suspect]
     Indication: OSTEOPENIA
     Dosage: 70 MG, QW
     Route: 048
     Dates: start: 200602, end: 201005
  2. FOSAMAX PLUS D [Suspect]
     Indication: OSTEOPENIA
     Dosage: 70 MG, QW
     Route: 048
     Dates: start: 200602, end: 201005
  3. LEVOTHYROXINE SODIUM [Concomitant]
     Indication: THYROIDECTOMY
     Dosage: UNK
     Dates: start: 2000
  4. NITROGLYCERIN [Concomitant]
     Indication: CHEST PAIN
     Dosage: UNK
     Dates: start: 2001
  5. VITAMINS (UNSPECIFIED) [Concomitant]
     Dosage: UNK
     Dates: start: 1992, end: 2011

REACTIONS (15)
  - Femur fracture [Unknown]
  - Hip arthroplasty [Unknown]
  - Tibia fracture [Unknown]
  - Blindness [Unknown]
  - Humerus fracture [Unknown]
  - Wrist surgery [Unknown]
  - Wrist fracture [Unknown]
  - Tooth extraction [Unknown]
  - Periarthritis [Unknown]
  - Fall [Unknown]
  - Fall [Unknown]
  - Depression [Unknown]
  - Sleep disorder [Unknown]
  - Intervertebral disc disorder [Unknown]
  - Back pain [Not Recovered/Not Resolved]
